FAERS Safety Report 7257566-6 (Version None)
Quarter: 2011Q1

REPORT INFORMATION
  Report Type: 
  Country: None (occurrence: None)
  Receive Date: 20110129
  Receipt Date: 20100607
  Transmission Date: 20110831
  Serious: No
  Sender: FDA-Public Use
  Company Number: US-ABBOTT-10P-163-0649194-00

PATIENT
  Sex: Female

DRUGS (8)
  1. HUMIRA [Suspect]
     Indication: RHEUMATOID ARTHRITIS
     Dates: start: 20100524
  2. COENZYME Q10 [Concomitant]
     Indication: MUSCLE SPASMS
  3. METOPROLOL [Concomitant]
     Indication: BLOOD PRESSURE
  4. AMLODIPINE [Concomitant]
     Indication: BLOOD PRESSURE
  5. METHOTREXATE [Concomitant]
     Indication: ARTHRITIS
  6. PRAVACHOL [Concomitant]
     Indication: BLOOD CHOLESTEROL INCREASED
  7. ASPIRIN [Concomitant]
     Indication: CARDIAC DISORDER
  8. COZAAR [Concomitant]
     Indication: BLOOD PRESSURE

REACTIONS (1)
  - BLOOD PRESSURE INCREASED [None]
